FAERS Safety Report 19463531 (Version 1)
Quarter: 2021Q2

REPORT INFORMATION
  Report Type: Spontaneous
  Country: US (occurrence: US)
  Receive Date: 20210627
  Receipt Date: 20210627
  Transmission Date: 20210717
  Serious: No
  Sender: FDA-Public Use
  Company Number: US-ORGANON-O2106USA001545

PATIENT
  Age: 55 Year
  Sex: Female

DRUGS (4)
  1. NITROGLYCERIN. [Concomitant]
     Active Substance: NITROGLYCERIN
     Dosage: UNK
  2. ACITRETIN. [Concomitant]
     Active Substance: ACITRETIN
     Dosage: UNK
  3. LOTRISONE [Suspect]
     Active Substance: BETAMETHASONE DIPROPIONATE\CLOTRIMAZOLE
     Indication: ACROKERATOSIS PARANEOPLASTICA
     Dosage: UNK
     Route: 061
  4. CISPLATIN. [Concomitant]
     Active Substance: CISPLATIN
     Dosage: UNK

REACTIONS (1)
  - Product use in unapproved indication [Unknown]
